FAERS Safety Report 9921477 (Version 2)
Quarter: 2014Q1

REPORT INFORMATION
  Report Type: Report from Study
  Country: US (occurrence: US)
  Receive Date: 20140225
  Receipt Date: 20140310
  Transmission Date: 20141002
  Serious: Yes (Death, Hospitalization)
  Sender: FDA-Public Use
  Company Number: PHEH2014US003738

PATIENT
  Sex: Male
  Weight: 50.9 kg

DRUGS (3)
  1. TOBI PODHALER [Suspect]
     Indication: BRONCHIECTASIS
     Dosage: 28 MG, BID
     Route: 055
     Dates: start: 20130827, end: 20131230
  2. FLOMAX ^BOEHRINGER INGELHEIM^ [Concomitant]
     Indication: BENIGN PROSTATIC HYPERPLASIA
     Dosage: 0.4 MG, DAILY
  3. FINASTERIDE [Concomitant]
     Indication: BENIGN PROSTATIC HYPERPLASIA
     Dosage: 5 MG, DAILY
     Route: 048

REACTIONS (6)
  - Primary ciliary dyskinesia [Fatal]
  - Pseudomonas infection [Fatal]
  - Cough [Fatal]
  - Productive cough [Fatal]
  - Dyspnoea [Fatal]
  - Weight decreased [Fatal]
